FAERS Safety Report 12544529 (Version 3)
Quarter: 2016Q4

REPORT INFORMATION
  Report Type: Report from Study
  Country: US (occurrence: US)
  Receive Date: 20160711
  Receipt Date: 20161227
  Transmission Date: 20170207
  Serious: Yes (Hospitalization, Other)
  Sender: FDA-Public Use
  Company Number: US-BAYER-2016-129252

PATIENT
  Sex: Male

DRUGS (8)
  1. KLOR-CON [Concomitant]
     Active Substance: POTASSIUM CHLORIDE
     Dosage: TAKE 1 TABLET BY MOUTH BID X2DAYS, THEN 1 TABLET DAILY THEREAFTER
  2. CARVEDILOL. [Concomitant]
     Active Substance: CARVEDILOL
     Indication: SECONDARY HYPERTENSION
     Dosage: 6.25 MG, QD
     Route: 048
  3. XGEVA [Concomitant]
     Active Substance: DENOSUMAB
     Indication: METASTASES TO BONE
  4. NEXAVAR [Suspect]
     Active Substance: SORAFENIB
     Indication: HEPATIC CANCER
     Dosage: 400 MG, BID
     Route: 048
     Dates: start: 20131024, end: 20160718
  5. RAMIPRIL. [Concomitant]
     Active Substance: RAMIPRIL
     Indication: SECONDARY HYPERTENSION
     Dosage: 10 MG, QD
     Route: 048
     Dates: start: 20131024
  6. AMLODIPINE [Concomitant]
     Active Substance: AMLODIPINE BESYLATE
     Indication: SECONDARY HYPERTENSION
     Dosage: 5 MG, QD
     Route: 048
  7. CLINDAGEL [Concomitant]
     Active Substance: CLINDAMYCIN PHOSPHATE
     Dosage: DAILY DOSE 1 %
     Route: 061
  8. BISPHOSPHONATES [Concomitant]
     Active Substance: UNSPECIFIED INGREDIENT
     Indication: METASTASES TO BONE

REACTIONS (6)
  - Squamous cell carcinoma of the oral cavity [None]
  - Squamous cell carcinoma of head and neck [None]
  - Adverse reaction [None]
  - Rash [None]
  - Musculoskeletal disorder [Recovered/Resolved]
  - Oropharyngeal pain [None]
